FAERS Safety Report 4853800-8 (Version None)
Quarter: 2005Q4

REPORT INFORMATION
  Report Type: 
  Country: None (occurrence: None)
  Receive Date: 20051213
  Receipt Date: 20051129
  Transmission Date: 20060501
  Serious: Yes (Death, Life-Threatening, Other)
  Sender: FDA-Public Use
  Company Number: US-2005-025873

PATIENT
  Age: 44 Year
  Sex: Female

DRUGS (4)
  1. CAMPATH [Suspect]
     Indication: ALLOGENIC BONE MARROW TRANSPLANTATION THERAPY
  2. FLUDARA [Suspect]
     Indication: ALLOGENIC BONE MARROW TRANSPLANTATION THERAPY
  3. CYCLOSPHOPHAMIDE [Concomitant]
  4. CYCLOSPORINE [Concomitant]

REACTIONS (12)
  - ARRHYTHMIA [None]
  - CYTOMEGALOVIRUS ANTIGEN POSITIVE [None]
  - EVAN'S SYNDROME [None]
  - HAEMODIALYSIS [None]
  - HYPERBILIRUBINAEMIA [None]
  - MULTI-ORGAN FAILURE [None]
  - RENAL FAILURE ACUTE [None]
  - RETICULOENDOTHELIAL DYSFUNCTION [None]
  - RHESUS INCOMPATIBILITY [None]
  - SHOCK [None]
  - STAPHYLOCOCCAL BACTERAEMIA [None]
  - TRANSPLANT FAILURE [None]
